FAERS Safety Report 19083048 (Version 1)
Quarter: 2021Q2

REPORT INFORMATION
  Report Type: Spontaneous
  Country: CN (occurrence: CN)
  Receive Date: 20210401
  Receipt Date: 20210401
  Transmission Date: 20210717
  Serious: Yes (Hospitalization, Other)
  Sender: FDA-Public Use
  Company Number: CN-AMNEAL PHARMACEUTICALS-2021-AMRX-01107

PATIENT
  Age: 62 Year
  Sex: Male

DRUGS (1)
  1. EPIRUBICIN HYDROCHLORIDE. [Suspect]
     Active Substance: EPIRUBICIN HYDROCHLORIDE
     Indication: BLADDER CANCER RECURRENT
     Dosage: 50 MILLIGRAM/SQ. METER DISSOLVED IN 50 ML SALINE SOLUTION AND GIVEN FOR 10 MIN
     Route: 013

REACTIONS (1)
  - Kounis syndrome [Recovered/Resolved]
